FAERS Safety Report 6986623-4 (Version None)
Quarter: 2010Q3

REPORT INFORMATION
  Report Type: 
  Country: None (occurrence: None)
  Receive Date: 20100827
  Receipt Date: 20091017
  Transmission Date: 20110219
  Serious: Yes (Life-Threatening, Hospitalization)
  Sender: FDA-Public Use
  Company Number: AMAG200900031

PATIENT
  Age: 75 Year
  Sex: Male
  Weight: 62.8 kg

DRUGS (8)
  1. FERAHEME [Suspect]
     Indication: IRON DEFICIENCY ANAEMIA
     Dosage: 170 MG, SINGLE
     Dates: start: 20091015, end: 20091015
  2. QUININE (QUININE HYDROCHLORIDE) [Suspect]
     Indication: PAIN IN EXTREMITY
     Dosage: 2 TABS, QHS; 2 TABS SINGLE
     Dates: start: 20091015, end: 20091015
  3. QUININE (QUININE HYDROCHLORIDE) [Suspect]
     Indication: PAIN IN EXTREMITY
     Dosage: 2 TABS, QHS; 2 TABS SINGLE
     Dates: start: 20091014
  4. FOLIC ACID [Concomitant]
  5. LABETALOL (LABETALOL0 [Concomitant]
  6. PROTONIX [Concomitant]
  7. PHOSLO [Concomitant]
  8. TYLENOL W/ CODEINE NO. 3 [Concomitant]

REACTIONS (2)
  - ANAPHYLACTIC REACTION [None]
  - HYPERTENSION [None]
